FAERS Safety Report 10744903 (Version 1)
Quarter: 2015Q1

REPORT INFORMATION
  Report Type: Report from Study
  Country: US (occurrence: US)
  Receive Date: 20150128
  Receipt Date: 20150128
  Transmission Date: 20150721
  Serious: Yes (Hospitalization)
  Sender: FDA-Public Use
  Company Number: US-SA-2014SA178740

PATIENT
  Age: 55 Year
  Sex: Female

DRUGS (19)
  1. VICODIN [Concomitant]
     Active Substance: ACETAMINOPHEN\HYDROCODONE BITARTRATE
     Dosage: STRENGHT: 5-500
  2. BACLOFEN. [Concomitant]
     Active Substance: BACLOFEN
     Dosage: STRENGTH: 20 MG
  3. ALPRAZOLAM. [Concomitant]
     Active Substance: ALPRAZOLAM
     Dosage: STRENGHT: 0.25 MG
  4. HEPARIN [Concomitant]
     Active Substance: HEPARIN SODIUM
     Dosage: 100 UNITS/ML
  5. AUBAGIO [Suspect]
     Active Substance: TERIFLUNOMIDE
     Indication: MULTIPLE SCLEROSIS
     Route: 048
     Dates: start: 20140328
  6. MIRABEGRON [Concomitant]
     Active Substance: MIRABEGRON
     Dosage: DOSAGE: 50 MG TAB ER 24H
  7. FORTAZ [Concomitant]
     Active Substance: CEFTAZIDIME SODIUM
     Dosage: 2 G VIAL
  8. EPIPEN [Concomitant]
     Active Substance: EPINEPHRINE
  9. PANTOPRAZOLE [Concomitant]
     Active Substance: PANTOPRAZOLE SODIUM
     Dosage: 40 MG
  10. PRIVIGEN [Concomitant]
     Active Substance: HUMAN IMMUNOGLOBULIN G
  11. COREG [Concomitant]
     Active Substance: CARVEDILOL
     Dosage: STRENGHT: 40 MG
  12. PROTONIX [Concomitant]
     Active Substance: PANTOPRAZOLE SODIUM
     Dosage: STRENGHT: 40 MG
  13. DIPHENHYDRAMINE [Concomitant]
     Active Substance: DIPHENHYDRAMINE
  14. SODIUM CHLORIDE. [Concomitant]
     Active Substance: SODIUM CHLORIDE
     Dosage: STRENGHT: 0.9 %
  15. GABAPENTIN. [Concomitant]
     Active Substance: GABAPENTIN
     Dosage: STRENGTH: 300 MG
  16. PAROXETINE HYDROCHLORIDE. [Concomitant]
     Active Substance: PAROXETINE HYDROCHLORIDE
     Dosage: STRENGTH: 20 MG
  17. AUBAGIO [Suspect]
     Active Substance: TERIFLUNOMIDE
     Indication: MULTIPLE SCLEROSIS
     Route: 048
     Dates: start: 201311
  18. ACETAMINOPHEN. [Concomitant]
     Active Substance: ACETAMINOPHEN
  19. PAXIL [Concomitant]
     Active Substance: PAROXETINE HYDROCHLORIDE
     Dosage: STRENGHT: 20 MG

REACTIONS (3)
  - Heart rate increased [Unknown]
  - Nausea [Unknown]
  - Urinary tract infection [Recovered/Resolved]

NARRATIVE: CASE EVENT DATE: 2014
